FAERS Safety Report 7728789-4 (Version None)
Quarter: 2011Q3

REPORT INFORMATION
  Report Type: 
  Country: None (occurrence: None)
  Receive Date: 20110831
  Receipt Date: 20110831
  Transmission Date: 20111222
  Serious: No
  Sender: FDA-Public Use
  Company Number: None

PATIENT
  Age: 74 Year
  Sex: Male
  Weight: 81.4 kg

DRUGS (1)
  1. EZETIMIBE [Suspect]
     Dosage: 10 MG EVERY DAY PO
     Route: 048
     Dates: start: 20050907, end: 20090422

REACTIONS (3)
  - MUSCLE RUPTURE [None]
  - MUSCLE HAEMORRHAGE [None]
  - MYOPATHY [None]
